FAERS Safety Report 6334738-6 (Version None)
Quarter: 2009Q3

REPORT INFORMATION
  Report Type: 
  Country: None (occurrence: None)
  Receive Date: 20090831
  Receipt Date: 20090818
  Transmission Date: 20100115
  Serious: Yes (Hospitalization, Other)
  Sender: FDA-Public Use
  Company Number: FR-PFIZER INC-2009158488

PATIENT
  Age: 87 Year

DRUGS (7)
  1. LYRICA [Interacting]
     Indication: MUSCULOSKELETAL PAIN
     Dosage: 150 MG, 2X/DAY
     Dates: start: 20080101, end: 20080831
  2. MORPHINE SULFATE [Suspect]
  3. LASIX [Concomitant]
     Dosage: UNK
  4. TENORETIC 100 [Concomitant]
     Dosage: UNK
     Dates: end: 20080901
  5. PREVISCAN [Concomitant]
     Dosage: UNK
  6. NOVOMIX [Concomitant]
     Dosage: UNK
  7. ZOCOR [Concomitant]
     Dosage: UNK

REACTIONS (15)
  - CARDIAC FAILURE [None]
  - COMA [None]
  - CONFUSIONAL STATE [None]
  - DECUBITUS ULCER [None]
  - DISORIENTATION [None]
  - DRUG INTERACTION [None]
  - DYSPNOEA [None]
  - FALL [None]
  - FLUID OVERLOAD [None]
  - HYPOKALAEMIA [None]
  - HYPONATRAEMIA [None]
  - OEDEMA [None]
  - PYREXIA [None]
  - RENAL FAILURE [None]
  - SEPSIS [None]
